FAERS Safety Report 7531572-6 (Version None)
Quarter: 2011Q2

REPORT INFORMATION
  Report Type: 
  Country: None (occurrence: None)
  Receive Date: 20110608
  Receipt Date: 20110601
  Transmission Date: 20111010
  Serious: Yes (Other)
  Sender: FDA-Public Use
  Company Number: NL-GENZYME-THYM-1002398

PATIENT

DRUGS (2)
  1. CYCLOSPORINE [Concomitant]
     Indication: APLASTIC ANAEMIA
  2. THYMOGLOBULIN [Suspect]
     Indication: APLASTIC ANAEMIA
     Dosage: 5 MG/KG, QD
     Route: 042

REACTIONS (1)
  - PAROXYSMAL NOCTURNAL HAEMOGLOBINURIA [None]
